FAERS Safety Report 5751715-4 (Version None)
Quarter: 2008Q2

REPORT INFORMATION
  Report Type: 
  Country: None (occurrence: None)
  Receive Date: 20080528
  Receipt Date: 20080514
  Transmission Date: 20081010
  Serious: Yes (Hospitalization)
  Sender: FDA-Public Use
  Company Number: FR-GILEAD-2008-0016305

PATIENT
  Age: 47 Year
  Sex: Male

DRUGS (8)
  1. VISTIDE [Suspect]
     Indication: CASTLEMAN'S DISEASE
     Route: 042
     Dates: start: 20071201, end: 20080101
  2. TENOFOVIR DISOPROXIL FUMARATE [Suspect]
     Indication: HIV INFECTION
     Dates: end: 20080101
  3. AMIKACIN [Suspect]
     Indication: SEPTIC SHOCK
     Dates: start: 20071201, end: 20080101
  4. BACTRIM DS [Concomitant]
  5. KIVEXA [Concomitant]
  6. KALETRA [Concomitant]
  7. NEXIUM [Concomitant]
  8. ATARAX [Concomitant]

REACTIONS (1)
  - RENAL FAILURE [None]
